FAERS Safety Report 5472400-2 (Version None)
Quarter: 2007Q3

REPORT INFORMATION
  Report Type: 
  Country: None (occurrence: None)
  Receive Date: 20070926
  Receipt Date: 20070913
  Transmission Date: 20080115
  Serious: Yes (Other)
  Sender: FDA-Public Use
  Company Number: 02100-JPN-07-0539

PATIENT
  Age: 77 Year
  Sex: Female

DRUGS (7)
  1. CILOSTAZOL [Suspect]
     Dosage: 200 MG ORAL
     Route: 048
     Dates: start: 20060912, end: 20070806
  2. CLARITHROMYCIN [Concomitant]
  3. CILNIDIPINE [Concomitant]
  4. LANSOPRAZOLE [Concomitant]
  5. TULOBUTEROL [Concomitant]
  6. IMIDAPRIL HYDROCHLORIDE [Concomitant]
  7. CARBOCISTEINE [Concomitant]

REACTIONS (1)
  - CEREBELLAR HAEMORRHAGE [None]
